FAERS Safety Report 5775336-2 (Version None)
Quarter: 2008Q2

REPORT INFORMATION
  Report Type: 
  Country: None (occurrence: None)
  Receive Date: 20080616
  Receipt Date: 20080616
  Transmission Date: 20081010
  Serious: Yes (Other)
  Sender: FDA-Public Use
  Company Number: None

PATIENT
  Age: 14 Year
  Sex: Female
  Weight: 38.1022 kg

DRUGS (5)
  1. SINGULAIR [Suspect]
     Indication: ASTHMA
     Dosage: 5 MG QHS PO
     Route: 048
     Dates: start: 20080125, end: 20080501
  2. PULMICORT-100 [Concomitant]
  3. ALBUTEROL [Concomitant]
  4. SYMBICORT [Concomitant]
  5. SERTRALINE [Concomitant]

REACTIONS (2)
  - ANXIETY [None]
  - DEPRESSION [None]
